FAERS Safety Report 7374554-X (Version None)
Quarter: 2011Q1

REPORT INFORMATION
  Report Type: 
  Country: None (occurrence: None)
  Receive Date: 20110325
  Receipt Date: 20100311
  Transmission Date: 20110831
  Serious: No
  Sender: FDA-Public Use
  Company Number: -MYLANLABS-2010S1004377

PATIENT
  Age: 39 Year
  Sex: Female

DRUGS (2)
  1. OXYCODONE [Concomitant]
  2. FENTANYL-100 [Suspect]
     Indication: PAIN
     Dosage: X1 PATCH
     Route: 062
     Dates: start: 20100309, end: 20100310

REACTIONS (2)
  - HEART RATE INCREASED [None]
  - NIGHTMARE [None]
